FAERS Safety Report 21380695 (Version 1)
Quarter: 2022Q3

REPORT INFORMATION
  Report Type: Spontaneous
  Country: DE (occurrence: DE)
  Receive Date: 20220927
  Receipt Date: 20220927
  Transmission Date: 20221027
  Serious: Yes (Hospitalization)
  Sender: FDA-Public Use
  Company Number: None

PATIENT
  Age: 82 Year
  Sex: Male
  Weight: 80 kg

DRUGS (16)
  1. METHOTREXATE SODIUM [Suspect]
     Active Substance: METHOTREXATE SODIUM
     Dosage: 7.5 MG, SCHEME
  2. PERSEA AMERICANA [Concomitant]
     Dosage: 0-0-1-0
  3. SOY BEAN [Concomitant]
     Dosage: 0-0-1-0
  4. EDOXABAN [Concomitant]
     Active Substance: EDOXABAN
     Dosage: 60 MG, 1-0-0-0
  5. CITALOPRAM [Concomitant]
     Active Substance: CITALOPRAM HYDROBROMIDE
     Dosage: 20 MG, 1-0-0-0
  6. ALLOPURINOL [Concomitant]
     Active Substance: ALLOPURINOL
     Dosage: 100 MG, 1-0-0-0
  7. METFORMIN [Concomitant]
     Active Substance: METFORMIN HYDROCHLORIDE
     Dosage: 500 MG, 0-0-1-0
  8. SITAGLIPTIN [Concomitant]
     Active Substance: SITAGLIPTIN
     Dosage: 100 MG, 1-0-0-0
  9. TORSEMIDE [Concomitant]
     Active Substance: TORSEMIDE
     Dosage: 5 MG, 1-0-0-0
  10. PANTOPRAZOLE SODIUM [Concomitant]
     Active Substance: PANTOPRAZOLE SODIUM
     Dosage: 40 MG, 1-0-0-0
  11. BUPRENORPHINE [Concomitant]
     Active Substance: BUPRENORPHINE
     Dosage: 5 MG/WEEK, SCHEDULE
  12. FOLIC ACID [Concomitant]
     Active Substance: FOLIC ACID
     Dosage: 5 MG/WEEK, SCHEDULE
  13. LACTULOSE [Concomitant]
     Active Substance: LACTULOSE
     Dosage: UNK, AS NEEDED
  14. CHOLECALCIFEROL [Concomitant]
     Active Substance: CHOLECALCIFEROL
     Dosage: 20000 IU / WEEK, SCHEME
  15. ROSUVASTATIN [Concomitant]
     Active Substance: ROSUVASTATIN
     Dosage: 40 MG, 0-0-1-0
  16. METAMIZOLE [Concomitant]
     Active Substance: METAMIZOLE
     Dosage: 500 MG, 1-0-1-0

REACTIONS (11)
  - Tachypnoea [Unknown]
  - Anaemia [Unknown]
  - Dyspnoea [Unknown]
  - Fatigue [Unknown]
  - Pyrexia [Unknown]
  - Abdominal pain [Unknown]
  - Erythema [Unknown]
  - Nausea [Unknown]
  - General physical health deterioration [Unknown]
  - Ageusia [Unknown]
  - Infection [Unknown]
